FAERS Safety Report 8869642 (Version 1)
Quarter: 2012Q4

REPORT INFORMATION
  Report Type: 
  Country: US (occurrence: US)
  Receive Date: 20121026
  Receipt Date: 20121026
  Transmission Date: 20130627
  Serious: No
  Sender: FDA-Public Use
  Company Number: US-AMGEN-USASP2012042907

PATIENT
  Age: 67 Year
  Sex: Female
  Weight: 68.93 kg

DRUGS (1)
  1. ENBREL [Suspect]
     Indication: RHEUMATOID ARTHRITIS
     Dosage: 25 mg/ml, 2 times/wk
     Route: 058
     Dates: start: 20051128

REACTIONS (3)
  - Foot operation [Unknown]
  - Incision site pain [Unknown]
  - Incision site erythema [Unknown]
